FAERS Safety Report 8570820-0 (Version None)
Quarter: 2012Q3

REPORT INFORMATION
  Report Type: 
  Country: None (occurrence: None)
  Receive Date: 20120806
  Receipt Date: 20120802
  Transmission Date: 20120928
  Serious: Yes (Other)
  Sender: FDA-Public Use
  Company Number: FR-AMGEN-FRASP2012048245

PATIENT
  Age: 82 Year
  Sex: Female

DRUGS (2)
  1. CORDARONE [Concomitant]
     Indication: SECONDARY HYPERTHYROIDISM
  2. NPLATE [Suspect]
     Indication: IDIOPATHIC THROMBOCYTOPENIC PURPURA

REACTIONS (1)
  - EYE PRURITUS [None]
